FAERS Safety Report 25964566 (Version 1)
Quarter: 2025Q4

REPORT INFORMATION
  Report Type: Spontaneous
  Country: CN (occurrence: CN)
  Receive Date: 20251027
  Receipt Date: 20251027
  Transmission Date: 20260118
  Serious: Yes (Hospitalization, Other)
  Sender: NOVO NORDISK
  Company Number: CN-NOVOPROD-1541008

PATIENT
  Age: 65 Year
  Sex: Male
  Weight: 100 kg

DRUGS (7)
  1. OZEMPIC [Suspect]
     Active Substance: SEMAGLUTIDE
     Indication: Weight control
  2. OZEMPIC [Suspect]
     Active Substance: SEMAGLUTIDE
     Indication: Type 2 diabetes mellitus
     Dosage: 1MG
  3. NOVORAPID [Suspect]
     Active Substance: INSULIN ASPART
     Indication: Type 2 diabetes mellitus
     Dosage: 70-80 UNITS AT A TIME (ADDITIONAL DOSES IF REQUIRED) TID
  4. OZEMPIC [Suspect]
     Active Substance: SEMAGLUTIDE
     Indication: Type 2 diabetes mellitus
     Dosage: UNK
  5. OZEMPIC [Suspect]
     Active Substance: SEMAGLUTIDE
     Indication: Weight control
  6. INSULIN GLARGINE [Concomitant]
     Active Substance: INSULIN GLARGINE
     Dosage: UNK AT NIGHT
  7. SHEN KANG [ASTRAGALUS MONGHOLICUS ROOT;CARTHAMUS TINCTORIUS FLOWER;RHE [Concomitant]
     Dosage: UNK

REACTIONS (9)
  - Hospitalisation [Unknown]
  - Renal disorder [Unknown]
  - Cardiac disorder [Unknown]
  - Dyspnoea [Unknown]
  - Cerebral infarction [Unknown]
  - Hypertension [Unknown]
  - Blood creatinine increased [Unknown]
  - Diabetic eye disease [Unknown]
  - Blood glucose increased [Not Recovered/Not Resolved]

NARRATIVE: CASE EVENT DATE: 20251010
